FAERS Safety Report 9790592 (Version 1)
Quarter: 2013Q4

REPORT INFORMATION
  Report Type: Report from Study
  Country: US (occurrence: US)
  Receive Date: 20131231
  Receipt Date: 20131231
  Transmission Date: 20140711
  Serious: Yes (Death)
  Sender: FDA-Public Use
  Company Number: US-ABBVIE-13P-163-1183545-00

PATIENT
  Sex: Male

DRUGS (3)
  1. GENGRAF [Suspect]
     Indication: LIVER TRANSPLANT
     Dosage: 3 CAPSULES 2 TIMES PER DAY
     Route: 048
     Dates: start: 19910426, end: 201310
  2. NORVASC [Concomitant]
     Indication: PRODUCT USED FOR UNKNOWN INDICATION
     Dates: end: 201310
  3. HUMULIN R [Concomitant]
     Indication: PRODUCT USED FOR UNKNOWN INDICATION
     Dates: end: 201310

REACTIONS (1)
  - Death [Fatal]
